FAERS Safety Report 9271716 (Version 2)
Quarter: 2013Q2

REPORT INFORMATION
  Report Type: Spontaneous
  Country: DE (occurrence: DE)
  Receive Date: 20130506
  Receipt Date: 20130530
  Transmission Date: 20140414
  Serious: Yes (Other)
  Sender: FDA-Public Use
  Company Number: DE-AMGEN-DEUSP2013030224

PATIENT
  Age: 74 Year
  Sex: Female

DRUGS (2)
  1. PROLIA [Suspect]
     Indication: PRODUCT USED FOR UNKNOWN INDICATION
     Dosage: 60 MG, UNK
     Route: 058
     Dates: start: 20120726, end: 20130201
  2. DEKRISTOL [Concomitant]
     Indication: OSTEOPOROSIS
     Dosage: 20000 IU, Q2WK
     Route: 048
     Dates: start: 201304

REACTIONS (1)
  - Hypotonic urinary bladder [Unknown]
